FAERS Safety Report 17959749 (Version 2)
Quarter: 2020Q3

REPORT INFORMATION
  Report Type: Spontaneous
  Country: US (occurrence: US)
  Receive Date: 20200629
  Receipt Date: 20200819
  Transmission Date: 20201103
  Serious: Yes (Hospitalization, Other)
  Sender: FDA-Public Use
  Company Number: US-BIOMARINAP-US-2020-130942

PATIENT
  Age: 20 Month
  Sex: Male
  Weight: 11.62 kg

DRUGS (1)
  1. KUVAN [Suspect]
     Active Substance: SAPROPTERIN DIHYDROCHLORIDE
     Indication: PHENYLKETONURIA
     Dosage: 200 MILLIGRAM, QD
     Route: 048
     Dates: start: 20190201

REACTIONS (4)
  - Diabetic ketoacidosis [Recovering/Resolving]
  - Respiratory rate increased [Recovering/Resolving]
  - Vomiting [Recovering/Resolving]
  - Type 1 diabetes mellitus [Recovering/Resolving]

NARRATIVE: CASE EVENT DATE: 20200621
